FAERS Safety Report 6870710-5 (Version None)
Quarter: 2010Q3

REPORT INFORMATION
  Report Type: 
  Country: None (occurrence: None)
  Receive Date: 20100723
  Receipt Date: 20100429
  Transmission Date: 20110219
  Serious: No
  Sender: FDA-Public Use
  Company Number: A0857310A

PATIENT
  Age: 80 Year
  Sex: Male

DRUGS (2)
  1. OLUX [Suspect]
     Indication: DERMATOSIS
     Route: 061
     Dates: start: 20100401
  2. UNKNOWN MEDICATION [Concomitant]
     Route: 061

REACTIONS (1)
  - APPLICATION SITE PAIN [None]
